FAERS Safety Report 6999331-0 (Version None)
Quarter: 2010Q3

REPORT INFORMATION
  Report Type: 
  Country: None (occurrence: None)
  Receive Date: 20100920
  Receipt Date: 20090721
  Transmission Date: 20110219
  Serious: Yes (Other)
  Sender: FDA-Public Use
  Company Number: US-ASTRAZENECA-2007UW05892

PATIENT
  Age: 26235 Day
  Sex: Male

DRUGS (6)
  1. SEROQUEL [Suspect]
     Indication: NERVOUSNESS
     Route: 048
     Dates: start: 20010509
  2. ETODOLAC [Concomitant]
     Indication: ARTHRALGIA
     Route: 048
     Dates: start: 20070509
  3. CLONAZEPAM [Concomitant]
     Indication: ANXIETY
     Dosage: TAKE ONE TABLET BY MOUTH THREE TIMES A DAY ANE MAY TAKE ONE MORE PRN
     Route: 048
     Dates: start: 20070509
  4. SIMVASTATIN [Concomitant]
     Indication: BLOOD CHOLESTEROL
     Route: 048
     Dates: start: 20070509
  5. METFORMIN HCL [Concomitant]
     Indication: DIABETES MELLITUS
     Route: 048
     Dates: start: 20070509
  6. PAROXETINE HCL [Concomitant]
     Route: 048
     Dates: start: 20070509

REACTIONS (4)
  - DIABETES MELLITUS [None]
  - KETOACIDOSIS [None]
  - PANCREATITIS [None]
  - TYPE 2 DIABETES MELLITUS [None]
